FAERS Safety Report 8301860-4 (Version None)
Quarter: 2012Q2

REPORT INFORMATION
  Report Type: 
  Country: None (occurrence: None)
  Receive Date: 20120417
  Receipt Date: 20120406
  Transmission Date: 20120825
  Serious: Yes (Other)
  Sender: FDA-Public Use
  Company Number: JPI-P-020843

PATIENT
  Age: 35 Year
  Sex: Female

DRUGS (2)
  1. XYREM [Suspect]
     Indication: NARCOLEPSY
     Dosage: 6 GM (3 GM, 2 IN 1 D), ORAL, ORAL, 9 GM (4.5 GM, 2  IN 1 D), ORAL
     Route: 048
     Dates: start: 20101020
  2. XYREM [Suspect]
     Indication: NARCOLEPSY
     Dosage: 6 GM (3 GM, 2 IN 1 D), ORAL, ORAL, 9 GM (4.5 GM, 2  IN 1 D), ORAL
     Route: 048
     Dates: start: 20111206

REACTIONS (5)
  - NECROSIS [None]
  - ARTHROPATHY [None]
  - OVARIAN CYST [None]
  - ARTHRITIS [None]
  - CONNECTIVE TISSUE DISORDER [None]
